FAERS Safety Report 6617920-X (Version None)
Quarter: 2010Q1

REPORT INFORMATION
  Report Type: 
  Country: None (occurrence: None)
  Receive Date: 20100308
  Receipt Date: 20080618
  Transmission Date: 20100710
  Serious: Yes (Other)
  Sender: FDA-Public Use
  Company Number: PHHY2008TW34235

PATIENT

DRUGS (1)
  1. GLEEVEC [Suspect]
     Dosage: UNK
     Dates: end: 20080501

REACTIONS (1)
  - METASTASIS [None]
